FAERS Safety Report 11575617 (Version 1)
Quarter: 2015Q3

REPORT INFORMATION
  Report Type: Spontaneous
  Country: US (occurrence: US)
  Receive Date: 20150916
  Receipt Date: 20150916
  Transmission Date: 20151125
  Serious: No
  Sender: FDA-Public Use
  Company Number: US-ELI_LILLY_AND_COMPANY-US200810001948

PATIENT
  Age: 81 Year
  Sex: Female
  Weight: 43.08 kg

DRUGS (12)
  1. ZOCOR [Concomitant]
     Active Substance: SIMVASTATIN
     Indication: BLOOD CHOLESTEROL
     Dosage: 10 MG, ONE EACH EVENING
  2. IMDUR [Concomitant]
     Active Substance: ISOSORBIDE MONONITRATE
     Dosage: 60 MG, DAILY (1/D)
  3. ATACAND [Concomitant]
     Active Substance: CANDESARTAN CILEXETIL
     Indication: BLOOD PRESSURE MEASUREMENT
     Dosage: 4 MG, DAILY (1/D)
  4. MULTIVIT                           /07504101/ [Concomitant]
  5. ASPIRIN                            /00002701/ [Concomitant]
     Active Substance: ASPIRIN
     Dosage: 325 MG, ONE QOD
  6. MECLIZINE HYDROCHLORIDE. [Concomitant]
     Active Substance: MECLIZINE HYDROCHLORIDE
     Indication: VERTIGO
     Dosage: 25 MG, TID AS NEEDED
     Dates: start: 20080204
  7. ADVIL [Concomitant]
     Active Substance: IBUPROFEN
     Dosage: 200 MG TWO, 2/D
  8. NITROSTAT [Concomitant]
     Active Substance: NITROGLYCERIN
     Dosage: 0.4 MG, ONE EVERY 5 MINUTES AS NEEDED
     Route: 060
     Dates: start: 20070914
  9. FORTEO [Suspect]
     Active Substance: TERIPARATIDE
     Indication: OSTEOPOROSIS
     Dosage: UNK, UNK
     Dates: start: 20071110, end: 20080416
  10. TUMS [Concomitant]
     Active Substance: CALCIUM CARBONATE
     Dosage: 750 MG, 2/D
  11. PROMETHAZINE HYDROCHLORIDE. [Concomitant]
     Active Substance: PROMETHAZINE HYDROCHLORIDE
     Dosage: 25 MG, EVERY 6 HOURS AS NEEDED
     Route: 048
     Dates: start: 20080204
  12. VITAMIN D3 [Concomitant]
     Active Substance: CHOLECALCIFEROL
     Dosage: 1000 U, DAILY (1/D)

REACTIONS (2)
  - Hypercalcaemia [Recovered/Resolved]
  - Hypersensitivity [Recovered/Resolved]

NARRATIVE: CASE EVENT DATE: 20080415
